FAERS Safety Report 13347228 (Version 5)
Quarter: 2017Q3

REPORT INFORMATION
  Report Type: Spontaneous
  Country: KR (occurrence: KR)
  Receive Date: 20170317
  Receipt Date: 20170829
  Transmission Date: 20171127
  Serious: Yes (Other)
  Sender: FDA-Public Use
  Company Number: KR-009507513-1703KOR007875

PATIENT
  Age: 61 Year
  Sex: Male
  Weight: 57 kg

DRUGS (78)
  1. HERCEPTIN [Concomitant]
     Active Substance: TRASTUZUMAB
     Indication: METASTATIC GASTRIC CANCER
     Dosage: 450 MG, ONCE (CYCLE 1)
     Route: 042
     Dates: start: 20161107, end: 20161107
  2. DEXAMETHASONE SODIUM PHOSPHATE. [Concomitant]
     Active Substance: DEXAMETHASONE SODIUM PHOSPHATE
     Dosage: 8 MG, ONCE
     Route: 042
     Dates: start: 20161108, end: 20161108
  3. POTASSIUM CHLORIDE. [Concomitant]
     Active Substance: POTASSIUM CHLORIDE
     Indication: PREMEDICATION
     Dosage: 0.5 AM, ONCE
     Route: 042
     Dates: start: 20161128, end: 20161128
  4. PENIRAMIN [Concomitant]
     Indication: PREMEDICATION
     Dosage: 1 AM, ONCE
     Route: 042
     Dates: start: 20161107, end: 20161107
  5. LASIX [Concomitant]
     Active Substance: FUROSEMIDE
     Dosage: 1 AM, ONCE
     Route: 042
     Dates: start: 20170206, end: 20170206
  6. MACPERAN [Concomitant]
     Active Substance: METOCLOPRAMIDE HYDROCHLORIDE
     Indication: PROPHYLAXIS OF NAUSEA AND VOMITING
     Dosage: 1 AMPOULE, TID
     Route: 042
     Dates: start: 20170302, end: 20170302
  7. EMEND (FOSAPREPITANT DIMEGLUMINE) [Suspect]
     Active Substance: FOSAPREPITANT DIMEGLUMINE
     Dosage: 150 MG, ONCE
     Route: 042
     Dates: start: 20170206, end: 20170206
  8. HERCEPTIN [Concomitant]
     Active Substance: TRASTUZUMAB
     Dosage: 340 MG, ONCE (CYCLE 3)
     Route: 042
     Dates: start: 20161219, end: 20161219
  9. DEXAMETHASONE SODIUM PHOSPHATE. [Concomitant]
     Active Substance: DEXAMETHASONE SODIUM PHOSPHATE
     Dosage: 4 AM, ONCE
     Route: 042
     Dates: start: 20170109, end: 20170109
  10. DEXAMETHASONE SODIUM PHOSPHATE. [Concomitant]
     Active Substance: DEXAMETHASONE SODIUM PHOSPHATE
     Dosage: 4 AM, ONCE
     Route: 042
     Dates: start: 20170206, end: 20170206
  11. DEXAMETHASONE SODIUM PHOSPHATE. [Concomitant]
     Active Substance: DEXAMETHASONE SODIUM PHOSPHATE
     Dosage: 4 AM, ONCE
     Route: 042
     Dates: start: 20170306, end: 20170306
  12. KANITRON [Concomitant]
     Dosage: 1 AM, ONCE
     Route: 042
     Dates: start: 20170109, end: 20170109
  13. PENIRAMIN [Concomitant]
     Dosage: 1 AM, ONCE
     Route: 042
     Dates: start: 20170306, end: 20170306
  14. MACPERAN [Concomitant]
     Active Substance: METOCLOPRAMIDE HYDROCHLORIDE
     Indication: PROPHYLAXIS OF NAUSEA AND VOMITING
     Dosage: 1 TABLET, QID
     Route: 048
     Dates: start: 20161107, end: 20161107
  15. MACPERAN [Concomitant]
     Active Substance: METOCLOPRAMIDE HYDROCHLORIDE
     Dosage: 1 TABLET, BID
     Route: 048
     Dates: start: 20161128, end: 20161202
  16. XELODA [Concomitant]
     Active Substance: CAPECITABINE
     Indication: METASTATIC GASTRIC CANCER
     Dosage: 3 TABLETS, BID (CYCLE 1)
     Route: 048
     Dates: start: 20161107, end: 20161120
  17. DEXAMETHASONE. [Concomitant]
     Active Substance: DEXAMETHASONE
     Indication: PROPHYLAXIS OF NAUSEA AND VOMITING
     Dosage: 16 TABLETS, QD
     Route: 048
     Dates: start: 20161109, end: 20161110
  18. PENIRAMIN [Concomitant]
     Dosage: 1 AM, ONCE
     Route: 042
     Dates: start: 20170206, end: 20170206
  19. RABET [Concomitant]
     Indication: GASTRIC ULCER PERFORATION
     Dosage: 1 DF, QD
     Route: 048
     Dates: start: 20161021, end: 20170302
  20. TYLENOL [Concomitant]
     Active Substance: ACETAMINOPHEN
     Dosage: 2 TABLETS, ONCE
     Route: 048
     Dates: start: 20161128, end: 20161128
  21. LAMINA G [Concomitant]
     Active Substance: SODIUM ALGINATE
     Dosage: 1 PK, BID
     Route: 048
     Dates: start: 20161028, end: 20161103
  22. LAMINA G [Concomitant]
     Active Substance: SODIUM ALGINATE
     Dosage: 1 PK, BID
     Route: 048
     Dates: start: 20161116, end: 20170302
  23. MACPERAN [Concomitant]
     Active Substance: METOCLOPRAMIDE HYDROCHLORIDE
     Dosage: 1 TABLET, TID
     Route: 048
     Dates: start: 20161108, end: 20161113
  24. EMEND (FOSAPREPITANT DIMEGLUMINE) [Suspect]
     Active Substance: FOSAPREPITANT DIMEGLUMINE
     Dosage: 150 MG, ONCE
     Route: 042
     Dates: start: 20161128, end: 20161128
  25. UNISTIN [Concomitant]
     Dosage: 90 MG, ONCE (CYCLE 5)
     Route: 042
     Dates: start: 20170206, end: 20170206
  26. XELODA [Concomitant]
     Active Substance: CAPECITABINE
     Dosage: 3 TABLETS, BID (CYCLE 4)
     Route: 048
     Dates: start: 20170109, end: 20170122
  27. DEXAMETHASONE SODIUM PHOSPHATE. [Concomitant]
     Active Substance: DEXAMETHASONE SODIUM PHOSPHATE
     Indication: PROPHYLAXIS OF NAUSEA AND VOMITING
     Dosage: 4 AM, ONCE
     Route: 042
     Dates: start: 20161107, end: 20161107
  28. KANITRON [Concomitant]
     Dosage: 1 AM, ONCE
     Route: 042
     Dates: start: 20161219, end: 20161219
  29. KANITRON [Concomitant]
     Dosage: 1 AM, ONCE
     Route: 042
     Dates: start: 20170206, end: 20170206
  30. PENIRAMIN [Concomitant]
     Dosage: 1 AM, ONCE
     Route: 042
     Dates: start: 20161128, end: 20161128
  31. PENIRAMIN [Concomitant]
     Dosage: 1 AM, ONCE
     Route: 042
     Dates: start: 20170109, end: 20170109
  32. TYLENOL [Concomitant]
     Active Substance: ACETAMINOPHEN
     Indication: PREMEDICATION
     Dosage: 2 TABLETS, ONCE
     Route: 048
     Dates: start: 20161107, end: 20161107
  33. LASIX [Concomitant]
     Active Substance: FUROSEMIDE
     Indication: PROPHYLAXIS AGAINST DEHYDRATION
     Dosage: 1 AM, ONCE
     Route: 042
     Dates: start: 20161107, end: 20161107
  34. ALOXI [Concomitant]
     Active Substance: PALONOSETRON HYDROCHLORIDE
     Indication: PROPHYLAXIS OF NAUSEA AND VOMITING
     Dosage: 1 VIAL, QD
     Route: 042
     Dates: start: 20160306, end: 20160306
  35. EMEND (FOSAPREPITANT DIMEGLUMINE) [Suspect]
     Active Substance: FOSAPREPITANT DIMEGLUMINE
     Dosage: 150 MG, ONCE
     Route: 042
     Dates: start: 20170109, end: 20170109
  36. UNISTIN [Concomitant]
     Dosage: 90 MG, ONCE (CYCLE 3)
     Route: 042
     Dates: start: 20161219, end: 20161219
  37. UNISTIN [Concomitant]
     Dosage: 90 MG, ONCE (CYCLE 4)
     Route: 042
     Dates: start: 20170109, end: 20170109
  38. XELODA [Concomitant]
     Active Substance: CAPECITABINE
     Dosage: 3 TABLETS, BID (CYCLE 3)
     Route: 048
     Dates: start: 20161219, end: 20170101
  39. XELODA [Concomitant]
     Active Substance: CAPECITABINE
     Dosage: 3 TABLETS, BID (CYCLE 6)
     Route: 048
     Dates: start: 20170306
  40. KANITRON [Concomitant]
     Indication: PROPHYLAXIS OF NAUSEA AND VOMITING
     Dosage: 1 AM, ONCE
     Route: 042
     Dates: start: 20161128, end: 20161128
  41. TYLENOL [Concomitant]
     Active Substance: ACETAMINOPHEN
     Dosage: 2 TABLETS, ONCE
     Route: 048
     Dates: start: 20170306, end: 20170306
  42. LAMINA G [Concomitant]
     Active Substance: SODIUM ALGINATE
     Indication: GASTRIC ULCER PERFORATION
     Dosage: 1 PK, TID
     Route: 048
     Dates: start: 20161022, end: 20161027
  43. LAMINA G [Concomitant]
     Active Substance: SODIUM ALGINATE
     Dosage: 1 PK, TID
     Route: 048
     Dates: start: 20161104, end: 20161115
  44. EMEND (FOSAPREPITANT DIMEGLUMINE) [Suspect]
     Active Substance: FOSAPREPITANT DIMEGLUMINE
     Indication: PROPHYLAXIS OF NAUSEA AND VOMITING
     Dosage: 150 MG, ONCE
     Route: 042
     Dates: start: 20161107, end: 20161107
  45. HERCEPTIN [Concomitant]
     Active Substance: TRASTUZUMAB
     Dosage: 340 MG, ONCE (CYCLE 2)
     Route: 042
     Dates: start: 20161128, end: 20161128
  46. HERCEPTIN [Concomitant]
     Active Substance: TRASTUZUMAB
     Dosage: 340 MG, ONCE (CYCLE 4)
     Route: 042
     Dates: start: 20170109, end: 20170109
  47. XELODA [Concomitant]
     Active Substance: CAPECITABINE
     Dosage: 3 TABLETS, BID (CYCLE 2)
     Route: 048
     Dates: start: 20161128, end: 20161211
  48. XELODA [Concomitant]
     Active Substance: CAPECITABINE
     Dosage: 3 TABLETS, BID (CYCLE 5)
     Route: 048
     Dates: start: 20170206, end: 20170219
  49. DEXAMETHASONE. [Concomitant]
     Active Substance: DEXAMETHASONE
     Dosage: 8 TABLETS, BID
     Route: 048
     Dates: start: 20161128, end: 20161130
  50. POTASSIUM CHLORIDE. [Concomitant]
     Active Substance: POTASSIUM CHLORIDE
     Indication: PROPHYLAXIS
     Dosage: 0.5 AM, ONCE
     Route: 042
     Dates: start: 20161107, end: 20161107
  51. PENIRAMIN [Concomitant]
     Dosage: 1 AM, ONCE
     Route: 042
     Dates: start: 20161219, end: 20161219
  52. TYLENOL [Concomitant]
     Active Substance: ACETAMINOPHEN
     Dosage: 2 TABLETS, ONCE
     Route: 048
     Dates: start: 20170109, end: 20170109
  53. TYLENOL [Concomitant]
     Active Substance: ACETAMINOPHEN
     Dosage: 2 TABLETS, ONCE
     Route: 048
     Dates: start: 20170206, end: 20170206
  54. LASIX [Concomitant]
     Active Substance: FUROSEMIDE
     Dosage: 1 AM, ONCE
     Route: 042
     Dates: start: 20170109, end: 20170109
  55. MACPERAN [Concomitant]
     Active Substance: METOCLOPRAMIDE HYDROCHLORIDE
     Dosage: 1 TABLET, BID
     Route: 048
     Dates: start: 20170206, end: 20170210
  56. MACPERAN [Concomitant]
     Active Substance: METOCLOPRAMIDE HYDROCHLORIDE
     Dosage: 1 TABLET, QID
     Route: 048
     Dates: start: 20170306, end: 20170310
  57. EMEND (FOSAPREPITANT DIMEGLUMINE) [Suspect]
     Active Substance: FOSAPREPITANT DIMEGLUMINE
     Dosage: 150 MG, ONCE
     Route: 042
     Dates: start: 20161219, end: 20161219
  58. UNISTIN [Concomitant]
     Indication: METASTATIC GASTRIC CANCER
     Dosage: 90 MG, ONCE (CYCLE 1)
     Route: 042
     Dates: start: 20161107, end: 20161107
  59. UNISTIN [Concomitant]
     Dosage: 90 MG, ONCE (CYCLE 2)
     Route: 042
     Dates: start: 20161128, end: 20161128
  60. HERCEPTIN [Concomitant]
     Active Substance: TRASTUZUMAB
     Dosage: 310 MG, ONCE (CYCLE 6)
     Route: 042
     Dates: start: 20170306, end: 20170306
  61. DEXAMETHASONE. [Concomitant]
     Active Substance: DEXAMETHASONE
     Dosage: 8 TABLETS, BID
     Route: 048
     Dates: start: 20161219, end: 20161221
  62. DEXAMETHASONE. [Concomitant]
     Active Substance: DEXAMETHASONE
     Dosage: 8 TABLETS, BID
     Route: 048
     Dates: start: 20170109, end: 20170111
  63. DEXAMETHASONE SODIUM PHOSPHATE. [Concomitant]
     Active Substance: DEXAMETHASONE SODIUM PHOSPHATE
     Dosage: 4 AM, ONCE
     Route: 042
     Dates: start: 20161128, end: 20161128
  64. DEXAMETHASONE SODIUM PHOSPHATE. [Concomitant]
     Active Substance: DEXAMETHASONE SODIUM PHOSPHATE
     Dosage: 4 AM, ONCE
     Route: 042
     Dates: start: 20161219, end: 20161219
  65. POTASSIUM CHLORIDE. [Concomitant]
     Active Substance: POTASSIUM CHLORIDE
     Dosage: 0.5 AM, ONCE
     Route: 042
     Dates: start: 20161219, end: 20161219
  66. POTASSIUM CHLORIDE. [Concomitant]
     Active Substance: POTASSIUM CHLORIDE
     Dosage: 0.5 AM, ONCE
     Route: 042
     Dates: start: 20170109, end: 20170109
  67. LASIX [Concomitant]
     Active Substance: FUROSEMIDE
     Dosage: 1 AM, ONCE
     Route: 042
     Dates: start: 20161128, end: 20161128
  68. LASIX [Concomitant]
     Active Substance: FUROSEMIDE
     Dosage: 1 AM, ONCE
     Route: 042
     Dates: start: 20161219, end: 20161219
  69. MACPERAN [Concomitant]
     Active Substance: METOCLOPRAMIDE HYDROCHLORIDE
     Dosage: 1 TABLET, BID
     Route: 048
     Dates: start: 20161219, end: 20161223
  70. MACPERAN [Concomitant]
     Active Substance: METOCLOPRAMIDE HYDROCHLORIDE
     Dosage: 1 TABLET, BID
     Route: 048
     Dates: start: 20170109, end: 20170113
  71. EMEND (FOSAPREPITANT DIMEGLUMINE) [Suspect]
     Active Substance: FOSAPREPITANT DIMEGLUMINE
     Dosage: 150 MG, ONCE
     Route: 042
     Dates: start: 20170306, end: 20170306
  72. UNISTIN [Concomitant]
     Dosage: 90 MG, ONCE (CYCLE 6)
     Route: 042
     Dates: start: 20170306, end: 20170306
  73. HERCEPTIN [Concomitant]
     Active Substance: TRASTUZUMAB
     Dosage: 340 MG, ONCE (CYCLE 5)
     Route: 042
     Dates: start: 20170206, end: 20170206
  74. POTASSIUM CHLORIDE. [Concomitant]
     Active Substance: POTASSIUM CHLORIDE
     Dosage: 0.5 AM, ONCE
     Route: 042
     Dates: start: 20170206, end: 20170206
  75. POTASSIUM CHLORIDE. [Concomitant]
     Active Substance: POTASSIUM CHLORIDE
     Dosage: 0.5 AM, ONCE
     Route: 042
     Dates: start: 20170306, end: 20170306
  76. TYLENOL [Concomitant]
     Active Substance: ACETAMINOPHEN
     Dosage: 2 TABLETS, ONCE
     Route: 048
     Dates: start: 20161219, end: 20161219
  77. LASIX [Concomitant]
     Active Substance: FUROSEMIDE
     Dosage: 1 AM, ONCE
     Route: 042
     Dates: start: 20170306, end: 20170306
  78. MACPERAN [Concomitant]
     Active Substance: METOCLOPRAMIDE HYDROCHLORIDE
     Dosage: 1 AMPOULE, QD
     Route: 042
     Dates: start: 20170304, end: 20170304

REACTIONS (2)
  - Decreased appetite [Not Recovered/Not Resolved]
  - Hyperbilirubinaemia [Recovered/Resolved]

NARRATIVE: CASE EVENT DATE: 20170109
